FAERS Safety Report 13097467 (Version 1)
Quarter: 2017Q1

REPORT INFORMATION
  Report Type: Spontaneous
  Country: US (occurrence: US)
  Receive Date: 20170108
  Receipt Date: 20170108
  Transmission Date: 20170428
  Serious: Yes (Disabling)
  Sender: FDA-Public Use
  Company Number: None

PATIENT
  Age: 30 Year
  Sex: Female
  Weight: 52.2 kg

DRUGS (1)
  1. XEOMIN [Suspect]
     Active Substance: INCOBOTULINUMTOXINA
     Indication: PRODUCT USED FOR UNKNOWN INDICATION
     Dosage: 20 UNITS INJECTION TO FOREHEAD?

REACTIONS (9)
  - Vision blurred [None]
  - Headache [None]
  - Nausea [None]
  - Pain in jaw [None]
  - Facial pain [None]
  - Eyelid ptosis [None]
  - Paraesthesia [None]
  - Temporomandibular joint syndrome [None]
  - Muscle spasms [None]

NARRATIVE: CASE EVENT DATE: 20160927
